FAERS Safety Report 9409816 (Version 1)
Quarter: 2013Q2

REPORT INFORMATION
  Report Type: Spontaneous
  Country: DE (occurrence: None)
  Receive Date: 20130605
  Receipt Date: 20130605
  Transmission Date: 20140414
  Serious: Yes (Other)
  Sender: FDA-Public Use
  Company Number: 1303-305

PATIENT
  Age: 81 Year
  Sex: Male

DRUGS (4)
  1. EYLEA (AFLIBERCEPT) (INJECTION) (AFLIBERCEPT) [Suspect]
     Indication: AGE-RELATED MACULAR DEGENERATION
     Route: 031
     Dates: start: 20130114, end: 20130124
  2. OMEPRAL (OMEPRAZOLE) [Concomitant]
  3. BLOPRESS (CANDESARTAN CILEXETIL) [Concomitant]
  4. BEZATOL SR (BEZAFIBRATE) [Concomitant]

REACTIONS (2)
  - Myocardial infarction [None]
  - Coronary artery stenosis [None]
